FAERS Safety Report 13950382 (Version 1)
Quarter: 2017Q3

REPORT INFORMATION
  Report Type: Report from Study
  Country: CA (occurrence: CA)
  Receive Date: 20170908
  Receipt Date: 20170908
  Transmission Date: 20171128
  Serious: Yes (Hospitalization, Other)
  Sender: FDA-Public Use
  Company Number: CA-TAKEDA-2017TUS018601

PATIENT
  Age: 58 Year
  Sex: Male

DRUGS (10)
  1. OXYBUTYNIN                         /00538902/ [Concomitant]
     Indication: HYPERTONIC BLADDER
     Dosage: UNK
  2. PREDNISONE. [Concomitant]
     Active Substance: PREDNISONE
     Dosage: 5 MG, UNK
     Dates: start: 201609
  3. MEZAVANT [Concomitant]
     Active Substance: MESALAMINE
     Dosage: 1.2 G, QD
     Dates: start: 200701
  4. PARIET [Concomitant]
     Active Substance: RABEPRAZOLE SODIUM
     Dosage: 40 MG, QD
  5. VEDOLIZUMAB [Suspect]
     Active Substance: VEDOLIZUMAB
     Indication: CROHN^S DISEASE
     Dosage: 300 MG, UNK
     Route: 042
     Dates: start: 20170203
  6. DUOTRAV [Concomitant]
     Active Substance: TIMOLOL MALEATE\TRAVOPROST
     Dosage: UNK UNK, QD
  7. CITALOPRAM [Concomitant]
     Active Substance: CITALOPRAM HYDROBROMIDE
     Indication: DEPRESSION
     Dosage: 20 MG, QD
     Dates: start: 1972
  8. CITALOPRAM [Concomitant]
     Active Substance: CITALOPRAM HYDROBROMIDE
     Indication: ANXIETY
  9. COTAZYM                            /00014701/ [Concomitant]
     Indication: DYSPEPSIA
     Dosage: UNK UNK, QD
  10. IMIPRAMINE [Concomitant]
     Active Substance: IMIPRAMINE
     Indication: DEPRESSION
     Dosage: 25 MG, QD

REACTIONS (2)
  - Intestinal obstruction [Unknown]
  - Kidney infection [Unknown]

NARRATIVE: CASE EVENT DATE: 201707
